FAERS Safety Report 6325270-4 (Version None)
Quarter: 2009Q3

REPORT INFORMATION
  Report Type: 
  Country: None (occurrence: None)
  Receive Date: 20090824
  Receipt Date: 20090625
  Transmission Date: 20100115
  Serious: No
  Sender: FDA-Public Use
  Company Number: US-ABBOTT-09P-163-0582154-00

PATIENT
  Sex: Male
  Weight: 104.42 kg

DRUGS (17)
  1. NIASPAN [Suspect]
     Indication: DYSLIPIDAEMIA
     Route: 048
     Dates: start: 20060101, end: 20070101
  2. NIASPAN [Suspect]
     Route: 048
     Dates: start: 20070101, end: 20090501
  3. NIASPAN [Suspect]
     Route: 048
     Dates: start: 20090601
  4. COREG [Concomitant]
     Indication: CARDIAC DISORDER
     Route: 048
  5. COZAAR [Concomitant]
     Indication: CARDIAC DISORDER
     Route: 048
  6. FUROSEMIDE [Concomitant]
     Indication: CARDIAC DISORDER
     Route: 048
  7. FOLIC ACID [Concomitant]
     Indication: MEDICAL DIET
     Route: 048
  8. COUMADIN [Concomitant]
     Indication: ANTICOAGULANT THERAPY
     Dosage: 6-7.5 MG DEPENDING ON THE INR RESULTS
     Route: 048
  9. SPIRACTOLONE [Concomitant]
     Indication: CARDIAC DISORDER
     Route: 048
  10. CELEBREX [Concomitant]
     Indication: ARTHRALGIA
     Route: 048
  11. HUMOLOG INSULIN [Concomitant]
     Indication: TYPE 1 DIABETES MELLITUS
     Dosage: 70-100 UNITS DEPENDING ON ACCUCHECK RESULTS
     Route: 058
  12. LANTUS [Concomitant]
     Indication: TYPE 1 DIABETES MELLITUS
     Dosage: 80-100 UNITS DEPENDING ON ACCUCHECK RESULTS
     Route: 058
  13. LYRICA [Concomitant]
     Indication: NEURALGIA
     Route: 048
  14. CRESTOR [Concomitant]
     Indication: BLOOD CHOLESTEROL INCREASED
     Route: 048
  15. ZYRTEC [Concomitant]
     Indication: HYPERSENSITIVITY
     Route: 048
  16. SINGULAIR [Concomitant]
     Indication: HYPERSENSITIVITY
     Route: 048
  17. AMBIEN CR [Concomitant]
     Indication: INSOMNIA
     Route: 048

REACTIONS (4)
  - FLUSHING [None]
  - INSOMNIA [None]
  - PRURITUS [None]
  - RASH [None]
